FAERS Safety Report 9279340 (Version 2)
Quarter: 2013Q2

REPORT INFORMATION
  Report Type: Spontaneous
  Country: US (occurrence: US)
  Receive Date: 20130508
  Receipt Date: 20130529
  Transmission Date: 20140414
  Serious: Yes (Hospitalization)
  Sender: FDA-Public Use
  Company Number: US-ELI_LILLY_AND_COMPANY-US201201009456

PATIENT
  Age: 74 Year
  Sex: Female
  Weight: 53.06 kg

DRUGS (8)
  1. FORTEO [Suspect]
     Indication: OSTEOPOROSIS
     Dosage: 20 UG, QD
     Dates: start: 20120106, end: 20130401
  2. FORTEO [Suspect]
     Dosage: 20 UG, QD
     Dates: end: 20120425
  3. FORTEO [Suspect]
     Dosage: 20 UG, QD
  4. MAGNESIUM [Concomitant]
  5. ABILIFY [Concomitant]
     Dosage: UNK
  6. OPIUM [Concomitant]
     Dosage: UNK
  7. EFFEXOR [Concomitant]
     Dosage: UNK
  8. CALCITRIOL [Concomitant]
     Dosage: UNK

REACTIONS (11)
  - Gait disturbance [Unknown]
  - Electrocardiogram abnormal [Unknown]
  - Bone pain [Unknown]
  - Amnesia [Unknown]
  - Sleep disorder due to a general medical condition [Unknown]
  - Muscle spasms [Unknown]
  - Fall [Unknown]
  - Pain [Unknown]
  - Fall [Unknown]
  - Cough [Unknown]
  - Blood parathyroid hormone increased [Unknown]
